FAERS Safety Report 9107104 (Version 1)
Quarter: 2013Q1

REPORT INFORMATION
  Report Type: Spontaneous
  Country: US (occurrence: US)
  Receive Date: 20130221
  Receipt Date: 20130221
  Transmission Date: 20140127
  Serious: Yes (Other)
  Sender: FDA-Public Use
  Company Number: US-AMGEN-USASP2013011341

PATIENT
  Age: 0 Year
  Sex: Female

DRUGS (2)
  1. ENBREL [Suspect]
     Dosage: 50 MG, QWK
     Route: 064
  2. ENBREL [Suspect]
     Dosage: 50 MG, QWK
     Route: 064

REACTIONS (1)
  - Premature baby [Recovered/Resolved]
